FAERS Safety Report 25232071 (Version 1)
Quarter: 2025Q2

REPORT INFORMATION
  Report Type: Report from Study
  Country: JP (occurrence: JP)
  Receive Date: 20250423
  Receipt Date: 20250423
  Transmission Date: 20250717
  Serious: Yes (Death)
  Sender: SHIONOGI
  Company Number: JP-shionogi-202500004257

PATIENT
  Age: 76 Year
  Sex: Male
  Weight: 61.1 kg

DRUGS (12)
  1. CEFIDEROCOL [Suspect]
     Active Substance: CEFIDEROCOL
     Indication: Haemorrhagic pneumonia
     Route: 041
     Dates: start: 20241113, end: 20241114
  2. CEFEPIME [Concomitant]
     Active Substance: CEFEPIME HYDROCHLORIDE
     Indication: Haemorrhagic pneumonia
     Route: 065
     Dates: start: 20241102, end: 20241108
  3. ZOSYN [Concomitant]
     Active Substance: PIPERACILLIN SODIUM\TAZOBACTAM SODIUM
     Indication: Haemorrhagic pneumonia
     Route: 065
     Dates: start: 20241109, end: 20241110
  4. PROPOFOL [Concomitant]
     Active Substance: PROPOFOL
     Indication: Haemorrhagic pneumonia
     Route: 065
     Dates: start: 20241110, end: 20241113
  5. FENTANYL [Concomitant]
     Active Substance: FENTANYL
     Indication: Haemorrhagic pneumonia
     Route: 065
     Dates: start: 20241110, end: 20241113
  6. FILGRASTIM [Concomitant]
     Active Substance: FILGRASTIM
     Indication: Haemorrhagic pneumonia
     Route: 065
     Dates: start: 20241110, end: 20241113
  7. SIVELESTAT SODIUM [Concomitant]
     Active Substance: SIVELESTAT SODIUM
     Indication: Haemorrhagic pneumonia
     Route: 065
     Dates: start: 20241110, end: 20241113
  8. CRESEMBA [Concomitant]
     Active Substance: ISAVUCONAZONIUM SULFATE
     Indication: Prophylaxis
     Route: 065
     Dates: start: 20241110, end: 20241114
  9. GLOBULIN [Concomitant]
     Indication: Haemorrhagic pneumonia
     Route: 065
     Dates: start: 20241110, end: 20241112
  10. CARBAZOCHROME SODIUM SULFONATE [Concomitant]
     Active Substance: CARBAZOCHROME SODIUM SULFONATE
     Indication: Haemorrhagic pneumonia
     Route: 065
     Dates: start: 20241110, end: 20241112
  11. TRANSAMIN [Concomitant]
     Active Substance: TRANEXAMIC ACID
     Indication: Haemorrhagic pneumonia
     Route: 065
     Dates: start: 20241110, end: 20241112
  12. ROCURONIUM BROMIDE [Concomitant]
     Active Substance: ROCURONIUM BROMIDE
     Indication: Haemorrhagic pneumonia
     Route: 065
     Dates: start: 20241110, end: 20241114

REACTIONS (1)
  - Haemorrhagic pneumonia [Fatal]
